FAERS Safety Report 4840291-6 (Version None)
Quarter: 2005Q4

REPORT INFORMATION
  Report Type: 
  Country: None (occurrence: None)
  Receive Date: 20051129
  Receipt Date: 20051118
  Transmission Date: 20060501
  Serious: Yes (Hospitalization)
  Sender: FDA-Public Use
  Company Number: US-MERCK-0511USA03491

PATIENT
  Age: 70 Year
  Sex: Female
  Weight: 119 kg

DRUGS (3)
  1. VIOXX [Suspect]
     Indication: MONARTHRITIS
     Route: 048
     Dates: end: 20041004
  2. ALEVE [Concomitant]
     Route: 065
  3. TYLENOL [Concomitant]
     Route: 065

REACTIONS (2)
  - BLADDER DISORDER [None]
  - MYOCARDIAL INFARCTION [None]
